FAERS Safety Report 6524797-X (Version None)
Quarter: 2009Q4

REPORT INFORMATION
  Report Type: 
  Country: None (occurrence: None)
  Receive Date: 20091224
  Receipt Date: 20091208
  Transmission Date: 20100525
  Serious: Yes (Death, Hospitalization, Other)
  Sender: FDA-Public Use
  Company Number: 2009-00083

PATIENT
  Age: 63 Year
  Sex: Male

DRUGS (12)
  1. SIMVASTATIN [Suspect]
     Indication: HYPERCHOLESTEROLAEMIA
     Dosage: ORAL
     Route: 048
  2. FUSIDIC ACID [Suspect]
     Indication: STAPHYLOCOCCAL INFECTION
     Dosage: ORAL
     Route: 048
  3. ASPIRIN [Concomitant]
  4. BISOPROLOL FUMARATE [Concomitant]
  5. CEFUROXIME [Concomitant]
  6. DESLORATADINE [Concomitant]
  7. DICLOFENAC [Concomitant]
  8. DIPYRIDAMOLE [Concomitant]
  9. ENALAPRIL [Concomitant]
  10. METRONIDAZOLE [Concomitant]
  11. RANITIDINE [Concomitant]
  12. VANCOMYCIN [Concomitant]

REACTIONS (5)
  - DIAPHRAGMATIC DISORDER [None]
  - METABOLIC DISORDER [None]
  - RENAL FAILURE ACUTE [None]
  - RHABDOMYOLYSIS [None]
  - TACHYPNOEA [None]
